FAERS Safety Report 4391462-7 (Version None)
Quarter: 2004Q3

REPORT INFORMATION
  Report Type: 
  Country: None (occurrence: None)
  Receive Date: 20040707
  Receipt Date: 20040622
  Transmission Date: 20050211
  Serious: Yes (Other)
  Sender: FDA-Public Use
  Company Number: FR-GLAXOSMITHKLINE-B0337368A

PATIENT
  Age: 62 Year
  Sex: Female

DRUGS (3)
  1. AVANDIA [Suspect]
     Dosage: 4MG PER DAY
     Route: 048
     Dates: start: 20040101
  2. METFORMIN [Suspect]
     Route: 048
  3. TRIATEC [Concomitant]
     Route: 048

REACTIONS (3)
  - FOLATE DEFICIENCY [None]
  - MACROCYTOSIS [None]
  - VITAMIN B12 DEFICIENCY [None]
